FAERS Safety Report 5562971-X (Version None)
Quarter: 2007Q4

REPORT INFORMATION
  Report Type: 
  Country: None (occurrence: None)
  Receive Date: 20071217
  Receipt Date: 20071203
  Transmission Date: 20080405
  Serious: Yes (Hospitalization)
  Sender: FDA-Public Use
  Company Number: JP-ROCHE-535442

PATIENT
  Age: 50 Year
  Sex: Male

DRUGS (2)
  1. PEG-INTERFERON A-2A (RO 25-8310) [Suspect]
     Route: 058
     Dates: start: 20070519, end: 20071027
  2. RIBAVIRIN [Suspect]
     Route: 048
     Dates: start: 20070519, end: 20071102

REACTIONS (1)
  - PROCTALGIA [None]
